FAERS Safety Report 11947700 (Version 3)
Quarter: 2016Q2

REPORT INFORMATION
  Report Type: Report from Study
  Country: CA (occurrence: CA)
  Receive Date: 20160125
  Receipt Date: 20160531
  Transmission Date: 20160815
  Serious: Yes (Other)
  Sender: FDA-Public Use
  Company Number: CA-JNJFOC-20151206737

PATIENT
  Age: 23 Year
  Sex: Female
  Weight: 48.5 kg

DRUGS (2)
  1. IMURAN [Suspect]
     Active Substance: AZATHIOPRINE
     Indication: CROHN^S DISEASE
     Route: 065
     Dates: start: 2004, end: 201512
  2. REMICADE [Suspect]
     Active Substance: INFLIXIMAB
     Indication: CROHN^S DISEASE
     Dosage: PPROX TOTAL NO OF INFUSIONS RECEIVED 54
     Route: 042
     Dates: start: 200909

REACTIONS (4)
  - Off label use [Unknown]
  - Laryngitis [Unknown]
  - Product use issue [Unknown]
  - Basal cell carcinoma [Recovered/Resolved]

NARRATIVE: CASE EVENT DATE: 200909
